FAERS Safety Report 18515801 (Version 1)
Quarter: 2020Q4

REPORT INFORMATION
  Report Type: Spontaneous
  Country: US (occurrence: US)
  Receive Date: 20201117
  Receipt Date: 20201117
  Transmission Date: 20210114
  Serious: No
  Sender: FDA-Public Use
  Company Number: None

PATIENT
  Age: 50 Year
  Sex: Female
  Weight: 84.37 kg

DRUGS (1)
  1. AZITHROMYCIN 250MG [Suspect]
     Active Substance: AZITHROMYCIN ANHYDROUS
     Indication: BRONCHITIS
     Dosage: 250 MG 2 TABS ONCE DAILY ORAL
     Route: 048
     Dates: start: 20200930

REACTIONS (6)
  - Peripheral swelling [None]
  - Dyspnoea [None]
  - Headache [None]
  - Feeling abnormal [None]
  - Dizziness [None]
  - Eye swelling [None]

NARRATIVE: CASE EVENT DATE: 20200930
